FAERS Safety Report 18753426 (Version 1)
Quarter: 2021Q1

REPORT INFORMATION
  Report Type: Spontaneous
  Country: PL (occurrence: PL)
  Receive Date: 20210118
  Receipt Date: 20210118
  Transmission Date: 20210419
  Serious: Yes (Death, Other)
  Sender: FDA-Public Use
  Company Number: PL-AMGEN-POLSP2021004153

PATIENT
  Age: 69 Year
  Sex: Male

DRUGS (13)
  1. BUPRENORPHINE. [Concomitant]
     Active Substance: BUPRENORPHINE
     Dosage: 52.5 MICROGRAM, PER HOUR
  2. BUPRENORPHINE. [Concomitant]
     Active Substance: BUPRENORPHINE
     Indication: PAIN
     Dosage: 17.5 MICROGRAM, PER HOUR
     Route: 062
  3. VELLOFENT [Concomitant]
     Dosage: 267 UNK
  4. XGEVA [Suspect]
     Active Substance: DENOSUMAB
     Indication: METASTASES TO SPINE
     Dosage: 120 MILLIGRAM, Q4WK
     Route: 065
  5. XGEVA [Suspect]
     Active Substance: DENOSUMAB
     Indication: METASTASES TO BONE
  6. BUPRENORPHINE. [Concomitant]
     Active Substance: BUPRENORPHINE
     Dosage: 70 MICROGRAM, PER HOUR
  7. VELLOFENT [Concomitant]
     Indication: PAIN
     Dosage: 133 MICROGRAM
  8. VITAMIN D3 [Concomitant]
     Active Substance: CHOLECALCIFEROL
     Dosage: UNK
  9. FENTANYL. [Concomitant]
     Active Substance: FENTANYL
     Dosage: UNK
     Route: 060
  10. CALCIUM [Concomitant]
     Active Substance: CALCIUM
     Dosage: 2 GRAM
     Route: 065
  11. BUPRENORPHINE. [Concomitant]
     Active Substance: BUPRENORPHINE
     Dosage: 105 MICROGRAM, PER HOUR
  12. PREGABALIN. [Concomitant]
     Active Substance: PREGABALIN
     Dosage: 75 MILLIGRAM, EVERY SECOND DAY
  13. IBUPROFEN. [Concomitant]
     Active Substance: IBUPROFEN
     Dosage: 200 MILLIGRAM, TID

REACTIONS (5)
  - Hypothyroidism [Unknown]
  - General physical health deterioration [Fatal]
  - Neoplasm progression [Not Recovered/Not Resolved]
  - Normocytic anaemia [Not Recovered/Not Resolved]
  - Hypocalcaemia [Unknown]
